FAERS Safety Report 6108611-2 (Version None)
Quarter: 2009Q1

REPORT INFORMATION
  Report Type: 
  Country: None (occurrence: None)
  Receive Date: 20090309
  Receipt Date: 20090302
  Transmission Date: 20090719
  Serious: Yes (Hospitalization, Other)
  Sender: FDA-Public Use
  Company Number: DE-ABBOTT-09P-062-0501261-00

PATIENT
  Sex: Male
  Weight: 57 kg

DRUGS (5)
  1. HUMIRA [Suspect]
     Indication: CROHN'S DISEASE
     Dosage: 160MG, LOADING DOSE
     Route: 058
     Dates: start: 20090120
  2. HUMIRA [Suspect]
     Indication: SHORT-BOWEL SYNDROME
  3. ANALGESICS [Concomitant]
     Indication: PAIN
  4. ANTIBIOTICS [Concomitant]
     Indication: DRUG USE FOR UNKNOWN INDICATION
  5. CORTISONE [Concomitant]
     Indication: CROHN'S DISEASE
     Route: 050

REACTIONS (6)
  - BLOOD AMYLASE INCREASED [None]
  - BLOOD CALCIUM DECREASED [None]
  - DEHYDRATION [None]
  - LIPASE INCREASED [None]
  - PANCREATITIS [None]
  - RENAL FAILURE [None]
